FAERS Safety Report 10645424 (Version 1)
Quarter: 2014Q4

REPORT INFORMATION
  Report Type: Spontaneous
  Country: US (occurrence: None)
  Receive Date: 20141210
  Receipt Date: 20141210
  Transmission Date: 20150529
  Serious: No
  Sender: FDA-Public Use
  Company Number: None

PATIENT
  Age: 26 Year
  Sex: Male
  Weight: 158.76 kg

DRUGS (1)
  1. SULFAMETHOXAZOLE/TRIMETHOPRIM [Suspect]
     Active Substance: SULFAMETHOXAZOLE\TRIMETHOPRIM
     Indication: CELLULITIS
     Dosage: 1 TABLET
     Route: 048
     Dates: start: 20140813, end: 20140820

REACTIONS (9)
  - Paraesthesia [None]
  - Decreased appetite [None]
  - Malaise [None]
  - Vertigo [None]
  - Urinary incontinence [None]
  - Glossitis [None]
  - Fatigue [None]
  - Mental status changes [None]
  - Constipation [None]

NARRATIVE: CASE EVENT DATE: 20140813
